FAERS Safety Report 5758162-X (Version None)
Quarter: 2008Q2

REPORT INFORMATION
  Report Type: 
  Country: None (occurrence: None)
  Receive Date: 20080602
  Receipt Date: 20080602
  Transmission Date: 20081010
  Serious: Yes (Hospitalization)
  Sender: FDA-Public Use
  Company Number: None

PATIENT
  Sex: Male
  Weight: 70.9 kg

DRUGS (1)
  1. TEMOZOLOMIDE [Suspect]
     Dosage: 3640 MG

REACTIONS (6)
  - BACTERIAL SEPSIS [None]
  - ENTEROCOLITIS [None]
  - GASTROINTESTINAL ISCHAEMIA [None]
  - MENTAL STATUS CHANGES [None]
  - PERFORMANCE STATUS DECREASED [None]
  - PNEUMONIA [None]
